FAERS Safety Report 6209297-9 (Version None)
Quarter: 2009Q2

REPORT INFORMATION
  Report Type: 
  Country: None (occurrence: None)
  Receive Date: 20090529
  Receipt Date: 20090504
  Transmission Date: 20091009
  Serious: Yes (Hospitalization, Other)
  Sender: FDA-Public Use
  Company Number: US-BAYER-200921121NA

PATIENT
  Age: 68 Year
  Sex: Female

DRUGS (2)
  1. ULTRAVIST (PHARMACY BULK) [Suspect]
     Indication: SCAN BRAIN
     Dosage: TOTAL DAILY DOSE: 100 ML  UNIT DOSE: 500 ML
     Route: 042
     Dates: start: 20090501, end: 20090501
  2. READI-CAT [Concomitant]
     Indication: SCAN BRAIN
     Route: 048
     Dates: start: 20090501, end: 20090501

REACTIONS (5)
  - ANAPHYLACTIC SHOCK [None]
  - BURNING SENSATION [None]
  - ERYTHEMA [None]
  - LOSS OF CONSCIOUSNESS [None]
  - SWELLING FACE [None]
